FAERS Safety Report 25427746 (Version 1)
Quarter: 2025Q2

REPORT INFORMATION
  Report Type: Spontaneous
  Country: CN (occurrence: CN)
  Receive Date: 20250612
  Receipt Date: 20250612
  Transmission Date: 20250716
  Serious: Yes (Hospitalization)
  Sender: MACLEODS
  Company Number: CN-MLMSERVICE-20250529-PI511764-00202-2

PATIENT

DRUGS (12)
  1. LINEZOLID [Suspect]
     Active Substance: LINEZOLID
     Indication: Cryptococcosis
     Route: 065
     Dates: start: 202501, end: 202501
  2. LINEZOLID [Suspect]
     Active Substance: LINEZOLID
     Indication: Brain abscess
  3. LINEZOLID [Suspect]
     Active Substance: LINEZOLID
     Indication: Brain abscess
  4. LINEZOLID [Suspect]
     Active Substance: LINEZOLID
     Indication: Nocardia sepsis
  5. VANCOMYCIN [Concomitant]
     Active Substance: VANCOMYCIN
     Indication: Cryptococcosis
     Route: 065
     Dates: start: 20250110, end: 20250116
  6. VANCOMYCIN [Concomitant]
     Active Substance: VANCOMYCIN
     Indication: Brain abscess
  7. METHYLPREDNISOLONE [Concomitant]
     Active Substance: METHYLPREDNISOLONE
     Route: 065
  8. MEROPENEM [Concomitant]
     Active Substance: MEROPENEM
     Indication: Cryptococcosis
     Route: 065
     Dates: start: 20250107
  9. MEROPENEM [Concomitant]
     Active Substance: MEROPENEM
     Indication: Brain abscess
  10. MEROPENEM [Concomitant]
     Active Substance: MEROPENEM
  11. FLUCONAZOLE [Concomitant]
     Active Substance: FLUCONAZOLE
     Indication: Cryptococcosis
     Route: 065
     Dates: start: 2024, end: 20250212
  12. FLUCONAZOLE [Concomitant]
     Active Substance: FLUCONAZOLE
     Indication: Brain abscess

REACTIONS (2)
  - Pancytopenia [Unknown]
  - Thrombocytopenia [Unknown]

NARRATIVE: CASE EVENT DATE: 20250116
